FAERS Safety Report 7043034-3 (Version None)
Quarter: 2010Q4

REPORT INFORMATION
  Report Type: 
  Country: None (occurrence: None)
  Receive Date: 20101013
  Receipt Date: 20100920
  Transmission Date: 20110411
  Serious: No
  Sender: FDA-Public Use
  Company Number: US-BRISTOL-MYERS SQUIBB COMPANY-15250558

PATIENT
  Age: 71 Year
  Sex: Female
  Weight: 69 kg

DRUGS (5)
  1. GLUCOPHAGE [Suspect]
     Dosage: 1DF=2000 UNITS NOT SPECIFIED
  2. GLUCOPHAGE XR [Suspect]
  3. CEPHALEXIN [Concomitant]
  4. ERYTHROMYCIN [Concomitant]
     Dosage: FOR FEW DAYS LAST WEEK
  5. PAXIL [Concomitant]
     Dosage: FOR FEW DAYS LAST WEEK

REACTIONS (3)
  - ANXIETY [None]
  - BLOOD GLUCOSE ABNORMAL [None]
  - IRRITABILITY [None]
